FAERS Safety Report 6253334-2 (Version None)
Quarter: 2009Q3

REPORT INFORMATION
  Report Type: 
  Country: None (occurrence: None)
  Receive Date: 20090701
  Receipt Date: 20090622
  Transmission Date: 20100115
  Serious: Yes (Disabling, Other)
  Sender: FDA-Public Use
  Company Number: PHHY2009GB03963

PATIENT
  Sex: Female

DRUGS (5)
  1. RASILEZ [Suspect]
     Indication: HYPERTENSION
     Dosage: 75 MG
     Route: 048
     Dates: start: 20081008
  2. PHYSIOTENS ^GIULINI^ [Concomitant]
     Indication: HYPERTENSION
     Dosage: 200 MCG
     Route: 048
  3. SIMVASTATIN [Concomitant]
     Indication: HYPERCHOLESTEROLAEMIA
     Route: 048
  4. ALLOPURINOL [Concomitant]
     Indication: GOUT
     Route: 048
  5. QUININE SULPHATE [Concomitant]
     Indication: MUSCLE SPASMS
     Dosage: UNK
     Route: 048

REACTIONS (1)
  - EPISTAXIS [None]
